FAERS Safety Report 7370031-0 (Version None)
Quarter: 2011Q1

REPORT INFORMATION
  Report Type: 
  Country: None (occurrence: None)
  Receive Date: 20110323
  Receipt Date: 20110309
  Transmission Date: 20110831
  Serious: Yes (Hospitalization, Other)
  Sender: FDA-Public Use
  Company Number: PHHY2011FR20062

PATIENT
  Sex: Female

DRUGS (1)
  1. COTAREG [Suspect]
     Dosage: 1 DF, QD
     Route: 048
     Dates: end: 20101002

REACTIONS (5)
  - DYSARTHRIA [None]
  - ATROPHY [None]
  - HYPONATRAEMIA [None]
  - CONFUSIONAL STATE [None]
  - DISORIENTATION [None]
